FAERS Safety Report 8989209 (Version 2)
Quarter: 2013Q2

REPORT INFORMATION
  Report Type: Spontaneous
  Country: US (occurrence: US)
  Receive Date: 20121227
  Receipt Date: 20130404
  Transmission Date: 20140414
  Serious: Yes (Disabling)
  Sender: FDA-Public Use
  Company Number: US-ASTRAZENECA-2012SE93894

PATIENT
  Age: 64 Year
  Sex: Female
  Weight: 52.6 kg

DRUGS (5)
  1. CRESTOR [Suspect]
     Indication: BLOOD CHOLESTEROL INCREASED
     Dosage: DAILY
     Route: 048
  2. COQ10 [Concomitant]
     Indication: BLOOD CHOLESTEROL INCREASED
     Route: 048
     Dates: start: 201210
  3. CLONAZEPAM [Concomitant]
     Indication: SLEEP DISORDER
  4. KRILL [Concomitant]
     Indication: BLOOD CHOLESTEROL INCREASED
     Dates: start: 2012, end: 2012
  5. FLAX SEED OIL [Concomitant]
     Indication: BLOOD CHOLESTEROL INCREASED
     Dates: start: 2012, end: 2012

REACTIONS (5)
  - Muscle atrophy [Not Recovered/Not Resolved]
  - Polymyositis [Unknown]
  - Skin disorder [Unknown]
  - Muscular weakness [Not Recovered/Not Resolved]
  - Myalgia [Not Recovered/Not Resolved]
